FAERS Safety Report 13347308 (Version 1)
Quarter: 2017Q1

REPORT INFORMATION
  Report Type: Report from Study
  Country: US (occurrence: US)
  Receive Date: 20170317
  Receipt Date: 20170317
  Transmission Date: 20170428
  Serious: Yes (Other)
  Sender: FDA-Public Use
  Company Number: US-ELI_LILLY_AND_COMPANY-US201703004975

PATIENT
  Age: 56 Year
  Sex: Female

DRUGS (2)
  1. FORTEO [Suspect]
     Active Substance: TERIPARATIDE
     Indication: OSTEOPOROSIS
     Dosage: 20 UG, UNKNOWN
     Route: 058
     Dates: start: 20170203
  2. LOVENOX [Suspect]
     Active Substance: ENOXAPARIN SODIUM
     Indication: PRODUCT USED FOR UNKNOWN INDICATION
     Dosage: 40 MG, UNKNOWN
     Route: 065
     Dates: start: 20170222, end: 20170310

REACTIONS (11)
  - Peripheral swelling [Recovering/Resolving]
  - Incision site pain [Recovering/Resolving]
  - Contusion [Recovering/Resolving]
  - Injection site pain [Recovered/Resolved]
  - Joint swelling [Recovering/Resolving]
  - Vomiting [Recovered/Resolved]
  - Renal failure [Recovering/Resolving]
  - Skin discolouration [Recovered/Resolved]
  - Hepatic failure [Recovering/Resolving]
  - Myalgia [Recovering/Resolving]
  - Nausea [Recovered/Resolved]

NARRATIVE: CASE EVENT DATE: 20170222
